FAERS Safety Report 19676551 (Version 4)
Quarter: 2021Q4

REPORT INFORMATION
  Report Type: Spontaneous
  Country: PT (occurrence: PT)
  Receive Date: 20210810
  Receipt Date: 20211120
  Transmission Date: 20220303
  Serious: Yes (Life-Threatening, Hospitalization)
  Sender: FDA-Public Use
  Company Number: PT-EMA-DD-20210729-HV_A-125059

PATIENT
  Age: 53 Year
  Sex: Male
  Weight: 80 kg

DRUGS (15)
  1. DICLOFENAC [Suspect]
     Active Substance: DICLOFENAC
     Indication: Product used for unknown indication
     Dosage: UNK
     Route: 065
  2. FENTANYL [Interacting]
     Active Substance: FENTANYL
     Indication: Induction of anaesthesia
     Dosage: 0.05 MILLIGRAM (ADDITIONAL DOSE)
     Route: 065
  3. FENTANYL [Interacting]
     Active Substance: FENTANYL
     Dosage: 0.1 MILLIGRAM
     Route: 065
  4. KETOROLAC [Interacting]
     Active Substance: KETOROLAC TROMETHAMINE
     Indication: Analgesic therapy
     Dosage: UNK
     Route: 042
  5. ONDANSETRON [Interacting]
     Active Substance: ONDANSETRON
     Indication: Prophylaxis of nausea and vomiting
     Dosage: 4 MILLIGRAM
     Route: 065
  6. ROPIVACAINE [Interacting]
     Active Substance: ROPIVACAINE
     Indication: Nerve block
     Dosage: 0.75 PERCENT (15+15 ML)
     Route: 065
  7. TRAMADOL [Interacting]
     Active Substance: TRAMADOL
     Indication: Analgesic therapy
     Dosage: UNK
     Route: 042
  8. DROPERIDOL [Interacting]
     Active Substance: DROPERIDOL
     Indication: Prophylaxis of nausea and vomiting
     Dosage: 0.63 MILLIGRAM
     Route: 065
  9. DROPERIDOL [Interacting]
     Active Substance: DROPERIDOL
     Dosage: 0.625 MILLIGRAM
     Route: 065
  10. METAMIZOLE [Interacting]
     Active Substance: METAMIZOLE
     Indication: Analgesic therapy
     Dosage: UNK
     Route: 042
  11. PROPOFOL [Interacting]
     Active Substance: PROPOFOL
     Indication: Induction of anaesthesia
     Dosage: 200 MILLIGRAM
     Route: 065
  12. PROPOFOL [Interacting]
     Active Substance: PROPOFOL
     Dosage: 2 MILLIGRAM/KILOGRAM/ HR
     Route: 065
  13. ROCURONIUM [Interacting]
     Active Substance: ROCURONIUM BROMIDE
     Indication: Anaesthesia
     Dosage: 30 MILLIGRAM
     Route: 065
  14. SUCCINYLCHOLINE [Interacting]
     Active Substance: SUCCINYLCHOLINE
     Indication: Induction of anaesthesia
     Dosage: 75 MILLIGRAM
     Route: 065
  15. SUCCINYLCHOLINE [Interacting]
     Active Substance: SUCCINYLCHOLINE
     Dosage: 75 MILLIGRAM
     Route: 065

REACTIONS (3)
  - Neuromuscular block prolonged [Recovered/Resolved]
  - Drug interaction [Recovered/Resolved]
  - Hypersensitivity [Recovered/Resolved]
